FAERS Safety Report 8882995 (Version 1)
Quarter: 2012Q4

REPORT INFORMATION
  Report Type: 
  Country: US (occurrence: US)
  Receive Date: 20121102
  Receipt Date: 20121102
  Transmission Date: 20130627
  Serious: No
  Sender: FDA-Public Use
  Company Number: US-ASTRAZENECA-2011SE73287

PATIENT
  Sex: Female

DRUGS (3)
  1. CRESTOR [Suspect]
     Indication: BLOOD CHOLESTEROL ABNORMAL
     Route: 048
     Dates: start: 201107
  2. TYLENOL [Concomitant]
     Indication: PAIN
  3. LIPITOR [Concomitant]

REACTIONS (10)
  - Pyrexia [Unknown]
  - Tremor [Unknown]
  - Feeling cold [Unknown]
  - Chills [Unknown]
  - Abdominal pain upper [Unknown]
  - Insomnia [Unknown]
  - Muscular weakness [Unknown]
  - Myalgia [Unknown]
  - Abdominal pain lower [Unknown]
  - Abdominal pain [Unknown]
